FAERS Safety Report 15715631 (Version 1)
Quarter: 2018Q4

REPORT INFORMATION
  Report Type: Spontaneous
  Country: US (occurrence: US)
  Receive Date: 20181212
  Receipt Date: 20181212
  Transmission Date: 20190205
  Serious: No
  Sender: FDA-Public Use
  Company Number: US-PFIZER INC-2018508598

PATIENT
  Age: 76 Year
  Sex: Female
  Weight: 67 kg

DRUGS (1)
  1. IBRANCE [Suspect]
     Active Substance: PALBOCICLIB
     Indication: BREAST CANCER METASTATIC
     Dosage: UNK UNK, CYCLIC [DAYS 1-21 Q28 DAYS]
     Route: 048

REACTIONS (5)
  - Fatigue [Unknown]
  - Back pain [Unknown]
  - Neoplasm progression [Unknown]
  - Hypertrichosis [Unknown]
  - Alopecia [Unknown]
